FAERS Safety Report 9649263 (Version 3)
Quarter: 2014Q1

REPORT INFORMATION
  Report Type: Spontaneous
  Country: US (occurrence: US)
  Receive Date: 20131028
  Receipt Date: 20140108
  Transmission Date: 20141002
  Serious: Yes (Hospitalization)
  Sender: FDA-Public Use
  Company Number: US-GLAXOSMITHKLINE-A1047195A

PATIENT
  Age: 60 Year
  Sex: Male

DRUGS (2)
  1. ROPINIROLE HYDROCHLORIDE [Suspect]
     Indication: PARKINSON^S DISEASE
     Dosage: 12MG UNKNOWN
     Route: 065
     Dates: start: 20101123
  2. REQUIP XL [Concomitant]
     Indication: PARKINSON^S DISEASE
     Dosage: 12MG UNKNOWN
     Route: 065
     Dates: start: 20101123

REACTIONS (1)
  - Knee arthroplasty [Recovered/Resolved]
